FAERS Safety Report 14634952 (Version 7)
Quarter: 2018Q3

REPORT INFORMATION
  Report Type: Report from Study
  Country: IT (occurrence: IT)
  Receive Date: 20180314
  Receipt Date: 20180704
  Transmission Date: 20181010
  Serious: Yes (Hospitalization, Other)
  Sender: FDA-Public Use
  Company Number: IT-ROCHE-1988052

PATIENT
  Age: 78 Year
  Sex: Male
  Weight: 70 kg

DRUGS (14)
  1. AMIODARONE HYDROCHLORIDE. [Concomitant]
     Active Substance: AMIODARONE HYDROCHLORIDE
     Route: 048
     Dates: start: 201701
  2. RAMIPRIL. [Concomitant]
     Active Substance: RAMIPRIL
     Route: 048
     Dates: start: 20180420
  3. FUROSEMIDE. [Concomitant]
     Active Substance: FUROSEMIDE
     Indication: PLEURAL EFFUSION
     Route: 048
     Dates: start: 20171010, end: 20171025
  4. MEROPENEM. [Concomitant]
     Active Substance: MEROPENEM
     Indication: PNEUMONIA
     Route: 065
     Dates: start: 20180126, end: 20180131
  5. ATEZOLIZUMAB. [Suspect]
     Active Substance: ATEZOLIZUMAB
     Indication: MALIGNANT URINARY TRACT NEOPLASM
     Dosage: MOST RECENT DOSE RECEIVED ON 24/AUG/2017 PRIOR TO THE SAE (HYPOTHYROIDISM WORSENING)?DATE OF MOST RE
     Route: 042
     Dates: start: 20170824
  6. RAMIPRIL. [Concomitant]
     Active Substance: RAMIPRIL
     Route: 048
     Dates: start: 20170809, end: 20180102
  7. ACETYLSALICYLIC ACID [Concomitant]
     Active Substance: ASPIRIN
     Route: 048
     Dates: start: 2016
  8. SPIRONOLACTONE. [Concomitant]
     Active Substance: SPIRONOLACTONE
     Indication: PLEURAL EFFUSION
     Route: 048
     Dates: start: 20171010
  9. LINEZOLID. [Concomitant]
     Active Substance: LINEZOLID
     Indication: PNEUMONIA
     Route: 065
     Dates: start: 20180128, end: 20180131
  10. PANTOPRAZOLE [Concomitant]
     Active Substance: PANTOPRAZOLE
     Route: 048
     Dates: start: 2016
  11. PREDNISONE. [Suspect]
     Active Substance: PREDNISONE
     Indication: STAPHYLOCOCCAL INFECTION
     Route: 048
     Dates: start: 20180206
  12. PREDNISONE. [Suspect]
     Active Substance: PREDNISONE
     Indication: ENTEROCOCCAL INFECTION
  13. SIMVASTATIN. [Concomitant]
     Active Substance: SIMVASTATIN
     Route: 048
     Dates: start: 2016
  14. PREDNISONE. [Suspect]
     Active Substance: PREDNISONE
     Indication: KIDNEY INFECTION
     Route: 048
     Dates: start: 20171213, end: 20180205

REACTIONS (5)
  - Hypokalaemia [Recovered/Resolved]
  - Kidney infection [Recovered/Resolved]
  - Endocarditis [Recovered/Resolved]
  - Hypothyroidism [Not Recovered/Not Resolved]
  - Diabetes mellitus [Not Recovered/Not Resolved]

NARRATIVE: CASE EVENT DATE: 20170828
